FAERS Safety Report 4590511-0 (Version None)
Quarter: 2005Q1

REPORT INFORMATION
  Report Type: 
  Country: None (occurrence: None)
  Receive Date: 20050217
  Receipt Date: 20050208
  Transmission Date: 20050727
  Serious: Yes (Hospitalization, Disabling, Other)
  Sender: FDA-Public Use
  Company Number: 2003008068

PATIENT

DRUGS (5)
  1. NEURONTIN [Suspect]
     Indication: CONVULSION
     Dates: start: 19950101, end: 20010101
  2. DILANTIN [Suspect]
     Indication: CONVULSION
     Dosage: 1200 MG (TID), ORAL
     Route: 048
     Dates: start: 19930101, end: 19950101
  3. ASPIRIN [Suspect]
     Indication: ILL-DEFINED DISORDER
  4. VITAMINS WITH MINERALS (VITAMINS WITH MINERALS) [Suspect]
     Indication: ANAEMIA
  5. MEGESTROL ACETATE [Concomitant]

REACTIONS (30)
  - ACTIVITIES OF DAILY LIVING IMPAIRED [None]
  - ANAEMIA [None]
  - APLASTIC ANAEMIA [None]
  - ARTHRALGIA [None]
  - ASTHENIA [None]
  - BALANCE DISORDER [None]
  - BURNS SECOND DEGREE [None]
  - COMA [None]
  - CONDITION AGGRAVATED [None]
  - CONVULSION [None]
  - COORDINATION ABNORMAL [None]
  - DISTURBANCE IN ATTENTION [None]
  - DIZZINESS [None]
  - DRUG INTOLERANCE [None]
  - DRY MOUTH [None]
  - FALL [None]
  - GRIP STRENGTH DECREASED [None]
  - HEADACHE [None]
  - HEMIPARESIS [None]
  - ILL-DEFINED DISORDER [None]
  - IMPAIRED DRIVING ABILITY [None]
  - LOSS OF CONSCIOUSNESS [None]
  - MENTAL IMPAIRMENT [None]
  - MUSCLE SPASMS [None]
  - NERVOUSNESS [None]
  - PAIN [None]
  - PANIC ATTACK [None]
  - PARALYSIS [None]
  - RED BLOOD CELL COUNT INCREASED [None]
  - SPEECH DISORDER [None]
